FAERS Safety Report 14172765 (Version 1)
Quarter: 2017Q4

REPORT INFORMATION
  Report Type: Spontaneous
  Country: US (occurrence: US)
  Receive Date: 20171108
  Receipt Date: 20171108
  Transmission Date: 20180321
  Serious: No
  Sender: FDA-Public Use
  Company Number: None

PATIENT
  Age: 6 Year
  Sex: Male
  Weight: 27 kg

DRUGS (1)
  1. XYZAL [Suspect]
     Active Substance: LEVOCETIRIZINE DIHYDROCHLORIDE
     Indication: MULTIPLE ALLERGIES
     Dosage: ?          QUANTITY:5 ML;?
     Route: 048
     Dates: start: 20171029, end: 20171108

REACTIONS (6)
  - Skin irritation [None]
  - Dry skin [None]
  - Enuresis [None]
  - Insomnia [None]
  - Anger [None]
  - Anxiety [None]

NARRATIVE: CASE EVENT DATE: 20171108
